FAERS Safety Report 11415990 (Version 1)
Quarter: 2015Q3

REPORT INFORMATION
  Report Type: Spontaneous
  Country: US (occurrence: US)
  Receive Date: 20150825
  Receipt Date: 20150825
  Transmission Date: 20151125
  Serious: Yes (Other)
  Sender: FDA-Public Use
  Company Number: US-BAUSCH-BL-2015-020168

PATIENT
  Sex: Male

DRUGS (1)
  1. XENAZINE [Suspect]
     Active Substance: TETRABENAZINE
     Indication: CHOREA
     Dosage: 2 TABLETS EVERY MORNING,?1 TABLET AFTERNOON,?1 TABLET AT BEDTIME.
     Route: 048
     Dates: start: 20120212

REACTIONS (1)
  - Cerebrovascular accident [Unknown]
